FAERS Safety Report 8426451-6 (Version None)
Quarter: 2012Q2

REPORT INFORMATION
  Report Type: 
  Country: None (occurrence: None)
  Receive Date: 20120611
  Receipt Date: 20120605
  Transmission Date: 20120825
  Serious: Yes (Hospitalization)
  Sender: FDA-Public Use
  Company Number: FR-PFIZER INC-2012129938

PATIENT
  Age: 46 Year
  Sex: Male

DRUGS (3)
  1. SUTENT [Suspect]
     Indication: RENAL CANCER METASTATIC
     Dosage: CYCLIC
     Dates: start: 20090114
  2. NICARDIPINE HYDROCHLORIDE [Concomitant]
     Indication: HYPERTENSION
  3. SUTENT [Suspect]
     Dosage: CYCLIC
     Dates: start: 20100818, end: 20100914

REACTIONS (1)
  - GASTROINTESTINAL DISORDER [None]
